FAERS Safety Report 15337834 (Version 1)
Quarter: 2018Q3

REPORT INFORMATION
  Report Type: Report from Study
  Country: None (occurrence: AU)
  Receive Date: 20180831
  Receipt Date: 20180831
  Transmission Date: 20181010
  Serious: Yes (Other)
  Sender: FDA-Public Use
  Company Number: AU-ABBVIE-18K-008-2470431-00

PATIENT
  Age: 36 Year
  Sex: Female

DRUGS (1)
  1. HUMIRA [Suspect]
     Active Substance: ADALIMUMAB
     Indication: CROHN^S DISEASE
     Route: 058
     Dates: start: 20180820

REACTIONS (4)
  - Injection site pain [Unknown]
  - Gastrointestinal disorder [Unknown]
  - Intestinal ulcer [Unknown]
  - Fear of injection [Unknown]

NARRATIVE: CASE EVENT DATE: 201808
